FAERS Safety Report 7633544-X (Version None)
Quarter: 2011Q3

REPORT INFORMATION
  Report Type: 
  Country: None (occurrence: None)
  Receive Date: 20110725
  Receipt Date: 20110713
  Transmission Date: 20111222
  Serious: Yes (Hospitalization, Congenital Anomaly, Other)
  Sender: FDA-Public Use
  Company Number: US-PFIZER INC-2008049868

PATIENT
  Sex: Female
  Weight: 3 kg

DRUGS (5)
  1. TYLENOL-500 [Concomitant]
     Indication: HEADACHE
     Dosage: UNK,
     Route: 064
  2. ZOFRAN [Concomitant]
     Dosage: UNK,
     Route: 064
  3. BUTALBITAL [Concomitant]
     Indication: HEADACHE
     Dosage: UNK,
     Route: 064
  4. ZOLOFT [Suspect]
     Dosage: 50 MG, UNK
     Route: 064
     Dates: start: 20050901
  5. PRENATAL VITAMINS [Concomitant]
     Dosage: UNK,
     Route: 064

REACTIONS (11)
  - TRICUSPID VALVE INCOMPETENCE [None]
  - LAEVOCARDIA [None]
  - PATENT DUCTUS ARTERIOSUS [None]
  - NEONATAL RESPIRATORY DISTRESS SYNDROME [None]
  - FALLOT'S TETRALOGY [None]
  - CONGENITAL PULMONARY VALVE ATRESIA [None]
  - ATRIAL SEPTAL DEFECT [None]
  - MATERNAL EXPOSURE DURING PREGNANCY [None]
  - PULMONARY ARTERY STENOSIS CONGENITAL [None]
  - MATERNAL DRUGS AFFECTING FOETUS [None]
  - MITRAL VALVE INCOMPETENCE [None]
